FAERS Safety Report 6602622-6 (Version None)
Quarter: 2010Q1

REPORT INFORMATION
  Report Type: 
  Country: None (occurrence: None)
  Receive Date: 20100225
  Receipt Date: 20100218
  Transmission Date: 20100710
  Serious: Yes (Disabling)
  Sender: FDA-Public Use
  Company Number: TR-AMGEN-US394894

PATIENT
  Age: 5 Year
  Sex: Male
  Weight: 19 kg

DRUGS (1)
  1. ENBREL [Suspect]
     Indication: JUVENILE ARTHRITIS
     Route: 058
     Dates: start: 20090623, end: 20100128

REACTIONS (1)
  - DEAFNESS [None]
